FAERS Safety Report 10835336 (Version 1)
Quarter: 2015Q1

REPORT INFORMATION
  Report Type: Spontaneous
  Country: US (occurrence: US)
  Receive Date: 20150219
  Receipt Date: 20150219
  Transmission Date: 20150721
  Serious: No
  Sender: FDA-Public Use
  Company Number: US-ABBVIE-14P-163-1202964-00

PATIENT
  Age: 28 Year
  Sex: Female
  Weight: 55.84 kg

DRUGS (5)
  1. NAPROXEN. [Concomitant]
     Active Substance: NAPROXEN
     Indication: RHEUMATOID ARTHRITIS
  2. VENTALIN [Concomitant]
     Indication: PRODUCT USED FOR UNKNOWN INDICATION
  3. SYNTHROID [Concomitant]
     Active Substance: LEVOTHYROXINE SODIUM
     Indication: HYPOTHYROIDISM
  4. HUMIRA [Suspect]
     Active Substance: ADALIMUMAB
     Indication: RHEUMATOID ARTHRITIS
     Route: 058
     Dates: start: 20140131, end: 20140131
  5. MICRONOR [Concomitant]
     Active Substance: NORETHINDRONE
     Indication: CONTRACEPTION

REACTIONS (6)
  - Product quality issue [Unknown]
  - Urticaria [Recovering/Resolving]
  - Injection site reaction [Recovered/Resolved]
  - Lip swelling [Recovering/Resolving]
  - Injection site erythema [Recovering/Resolving]
  - Skin reaction [Unknown]

NARRATIVE: CASE EVENT DATE: 20140208
